FAERS Safety Report 5867964-0 (Version None)
Quarter: 2008Q3

REPORT INFORMATION
  Report Type: 
  Country: None (occurrence: None)
  Receive Date: 20080902
  Receipt Date: 20080825
  Transmission Date: 20090109
  Serious: No
  Sender: FDA-Public Use
  Company Number: US-BOEHRINGER INGELHEIM GMBH, GERMANY-2008-BP-13590BP

PATIENT
  Sex: Female

DRUGS (6)
  1. SPIRIVA [Suspect]
     Indication: CHRONIC OBSTRUCTIVE PULMONARY DISEASE
     Route: 055
     Dates: start: 20080501, end: 20080822
  2. ATROVENT [Concomitant]
     Indication: CHRONIC OBSTRUCTIVE PULMONARY DISEASE
     Route: 055
     Dates: start: 19950101
  3. NITROGLYCERIN [Concomitant]
     Indication: CARDIAC FAILURE CONGESTIVE
     Dates: start: 20040101
  4. BUMETENIDE [Concomitant]
     Indication: CARDIAC FAILURE CONGESTIVE
     Dates: start: 20070101
  5. POTASSIUM CHLORIDE [Concomitant]
     Dates: start: 20060101
  6. GOUT PILL [Concomitant]
     Indication: GOUT
     Dates: start: 20070101

REACTIONS (1)
  - EAR PAIN [None]
